FAERS Safety Report 18104892 (Version 3)
Quarter: 2020Q4

REPORT INFORMATION
  Report Type: Spontaneous
  Country: US (occurrence: US)
  Receive Date: 20200803
  Receipt Date: 20201013
  Transmission Date: 20210113
  Serious: No
  Sender: FDA-Public Use
  Company Number: US-BRISTOL-MYERS SQUIBB COMPANY-BMS-2020-062098

PATIENT
  Sex: Female

DRUGS (1)
  1. ORENCIA [Suspect]
     Active Substance: ABATACEPT
     Indication: RHEUMATOID ARTHRITIS
     Dosage: 250 MILLIGRAM, Q4WK
     Route: 042
     Dates: start: 201703

REACTIONS (6)
  - Arthralgia [Unknown]
  - Asthenia [Unknown]
  - Limb discomfort [Unknown]
  - Nail cuticle fissure [Unknown]
  - Drug ineffective [Unknown]
  - Fatigue [Unknown]
